FAERS Safety Report 7301422-1 (Version None)
Quarter: 2011Q1

REPORT INFORMATION
  Report Type: 
  Country: None (occurrence: None)
  Receive Date: 20110218
  Receipt Date: 20110215
  Transmission Date: 20110831
  Serious: Yes (Death)
  Sender: FDA-Public Use
  Company Number: PHHY2011US12976

PATIENT
  Sex: Male
  Weight: 25.85 kg

DRUGS (3)
  1. ATIVAN [Concomitant]
  2. MORPHINE [Concomitant]
  3. EXJADE [Suspect]
     Dosage: 1500 MG, QD
     Route: 048
     Dates: start: 20100601

REACTIONS (1)
  - DEATH [None]
